FAERS Safety Report 24825596 (Version 2)
Quarter: 2025Q1

REPORT INFORMATION
  Report Type: Spontaneous
  Country: US (occurrence: US)
  Receive Date: 20250109
  Receipt Date: 20250123
  Transmission Date: 20250408
  Serious: Yes (Life-Threatening, Hospitalization)
  Sender: TEVA
  Company Number: US-TEVA-VS-3284261

PATIENT
  Age: 54 Year
  Sex: Female

DRUGS (2)
  1. HYDROXYCHLOROQUINE [Suspect]
     Active Substance: HYDROXYCHLOROQUINE
     Indication: Antiphospholipid syndrome
     Route: 065
  2. BELIMUMAB [Suspect]
     Active Substance: BELIMUMAB
     Indication: Antiphospholipid syndrome
     Route: 065

REACTIONS (3)
  - Liver injury [Recovered/Resolved]
  - Herpes simplex hepatitis [Recovered/Resolved]
  - Respiratory failure [Recovered/Resolved]
